FAERS Safety Report 8926148 (Version 1)
Quarter: 2012Q4

REPORT INFORMATION
  Report Type: 
  Country: DE (occurrence: JP)
  Receive Date: 20121127
  Receipt Date: 20121127
  Transmission Date: 20130627
  Serious: Yes (Other)
  Sender: FDA-Public Use
  Company Number: JP-BRISTOL-MYERS SQUIBB COMPANY-17148024

PATIENT
  Age: 50 Year
  Sex: Male

DRUGS (5)
  1. METGLUCO [Suspect]
     Indication: DIABETES MELLITUS
     Route: 048
  2. PRITOR [Suspect]
     Route: 048
  3. ACTOS [Suspect]
     Route: 048
  4. ROZEREM [Concomitant]
     Route: 048
  5. LIPITOR [Concomitant]
     Route: 048

REACTIONS (1)
  - Leukopenia [Recovering/Resolving]
